FAERS Safety Report 9152438 (Version 2)
Quarter: 2013Q2

REPORT INFORMATION
  Report Type: Spontaneous
  Country: BR (occurrence: BR)
  Receive Date: 20130308
  Receipt Date: 20130415
  Transmission Date: 20140414
  Serious: Yes (Other)
  Sender: FDA-Public Use
  Company Number: BR-ASTRAZENECA-2013SE13843

PATIENT
  Sex: Female
  Weight: 67 kg

DRUGS (2)
  1. ATACAND [Suspect]
     Indication: BLOOD PRESSURE FLUCTUATION
     Route: 048
     Dates: start: 201211
  2. LIORAM [Concomitant]
     Indication: SLEEP DISORDER
     Route: 048

REACTIONS (3)
  - Hypertension [Not Recovered/Not Resolved]
  - Nervousness [Not Recovered/Not Resolved]
  - Drug ineffective [Unknown]
